FAERS Safety Report 22596098 (Version 1)
Quarter: 2023Q2

REPORT INFORMATION
  Report Type: Report from Study
  Country: CA (occurrence: CA)
  Receive Date: 20230613
  Receipt Date: 20230613
  Transmission Date: 20230722
  Serious: Yes (Other)
  Sender: FDA-Public Use
  Company Number: CA-ABBVIE-5285002

PATIENT
  Sex: Male

DRUGS (1)
  1. LUPRON DEPOT [Suspect]
     Active Substance: LEUPROLIDE ACETATE
     Indication: Prostate cancer
     Dosage: STRENGTH 22.5 MILLIGRAM
     Route: 030
     Dates: start: 20161006

REACTIONS (5)
  - Metastases to bone [Unknown]
  - Asthenia [Unknown]
  - Metastases to bladder [Unknown]
  - Pain in extremity [Unknown]
  - Metastases to liver [Unknown]
